FAERS Safety Report 4429146-9 (Version None)
Quarter: 2004Q3

REPORT INFORMATION
  Report Type: 
  Country: None (occurrence: None)
  Receive Date: 20040726
  Receipt Date: 20040311
  Transmission Date: 20050211
  Serious: No
  Sender: FDA-Public Use
  Company Number: USA040361686

PATIENT
  Age: 47 Year
  Sex: Female
  Weight: 77 kg

DRUGS (8)
  1. FORTEO [Suspect]
     Indication: OSTEOPENIA
     Dosage: 20 UG/1 DAY
     Dates: start: 20030601
  2. FORTEO [Suspect]
     Indication: STRESS FRACTURE
     Dosage: 20 UG/1 DAY
     Dates: start: 20030601
  3. FOSAMAX (ALENDRONATE SODIUM0 [Concomitant]
  4. LASIX [Concomitant]
  5. PLAQUENIL [Concomitant]
  6. IMURAN [Concomitant]
  7. NEXIUM [Concomitant]
  8. PREDNISONE [Concomitant]

REACTIONS (2)
  - INJECTION SITE ERYTHEMA [None]
  - INJECTION SITE HAEMORRHAGE [None]
